FAERS Safety Report 4912953-3 (Version None)
Quarter: 2006Q1

REPORT INFORMATION
  Report Type: 
  Country: None (occurrence: None)
  Receive Date: 20060210
  Receipt Date: 20060201
  Transmission Date: 20060701
  Serious: Yes (Hospitalization)
  Sender: FDA-Public Use
  Company Number: 2006PV007910

PATIENT
  Age: 50 Year
  Sex: Female
  Weight: 129.2752 kg

DRUGS (6)
  1. BYETTA [Suspect]
     Indication: DIABETES MELLITUS NON-INSULIN-DEPENDENT
     Dosage: SEE IMAGE
     Route: 058
  2. INSULIN [Concomitant]
  3. METFORMIN [Concomitant]
  4. ACTOS [Concomitant]
  5. PRANDIN [Concomitant]
  6. PRANDIN [Concomitant]

REACTIONS (2)
  - BLOOD GLUCOSE INCREASED [None]
  - FOOD POISONING [None]
